FAERS Safety Report 7109218-0 (Version None)
Quarter: 2010Q4

REPORT INFORMATION
  Report Type: 
  Country: None (occurrence: None)
  Receive Date: 20101117
  Receipt Date: 20101105
  Transmission Date: 20110411
  Serious: Yes (Hospitalization, Other)
  Sender: FDA-Public Use
  Company Number: CA-ELI_LILLY_AND_COMPANY-CA201005000445

PATIENT
  Age: 67 Year
  Sex: Female

DRUGS (1)
  1. FORTEO [Suspect]
     Indication: OSTEOPOROSIS
     Dosage: 20 UG, DAILY (1/D)
     Route: 058
     Dates: start: 20100221, end: 20100430

REACTIONS (8)
  - ASTHENIA [None]
  - BALANCE DISORDER [None]
  - CREATININE RENAL CLEARANCE INCREASED [None]
  - GAIT DISTURBANCE [None]
  - HYPOAESTHESIA [None]
  - PARKINSONISM [None]
  - RENAL IMPAIRMENT [None]
  - URINARY TRACT INFECTION [None]
